FAERS Safety Report 16175740 (Version 1)
Quarter: 2019Q2

REPORT INFORMATION
  Report Type: Spontaneous
  Country: GB (occurrence: GB)
  Receive Date: 20190409
  Receipt Date: 20190409
  Transmission Date: 20190711
  Serious: Yes (Life-Threatening, Hospitalization, Other)
  Sender: FDA-Public Use
  Company Number: GB-RARE DISEASE THERAPEUTICS, INC.-1042604

PATIENT
  Age: 19 Year
  Sex: Male

DRUGS (2)
  1. MERCAPTOPURINE. [Suspect]
     Active Substance: MERCAPTOPURINE
  2. PURIXAN [Suspect]
     Active Substance: MERCAPTOPURINE
     Indication: CROHN^S DISEASE

REACTIONS (10)
  - Diffuse large B-cell lymphoma [Unknown]
  - Epstein-Barr virus infection [Unknown]
  - Splenic haemorrhage [Unknown]
  - Haemophagocytic lymphohistiocytosis [Recovered/Resolved]
  - Lymphadenopathy [Unknown]
  - Large intestinal ulcer [Unknown]
  - Product use in unapproved indication [None]
  - Generalised tonic-clonic seizure [Unknown]
  - Encephalitis [Unknown]
  - Pneumonia aspiration [Unknown]
